FAERS Safety Report 24834710 (Version 1)
Quarter: 2025Q1

REPORT INFORMATION
  Report Type: Spontaneous
  Country: US (occurrence: None)
  Receive Date: 20250110
  Receipt Date: 20250110
  Transmission Date: 20250408
  Serious: No
  Sender: FDA-CTU
  Company Number: None

PATIENT
  Age: 17 Day
  Sex: Female
  Weight: 2.7 kg

DRUGS (1)
  1. BEYFORTUS [Suspect]
     Active Substance: NIRSEVIMAB-ALIP
     Indication: Infection prophylaxis
     Dates: start: 20241214, end: 20241230

REACTIONS (3)
  - Circumstance or information capable of leading to medication error [None]
  - Extra dose administered [None]
  - Vaccination error [None]

NARRATIVE: CASE EVENT DATE: 20241230
